FAERS Safety Report 14644052 (Version 1)
Quarter: 2018Q1

REPORT INFORMATION
  Report Type: Spontaneous
  Country: FR (occurrence: FR)
  Receive Date: 20180315
  Receipt Date: 20180315
  Transmission Date: 20180509
  Serious: Yes (Hospitalization)
  Sender: FDA-Public Use
  Company Number: FR-PFIZER INC-2018101838

PATIENT
  Age: 31 Year
  Sex: Female
  Weight: 54 kg

DRUGS (5)
  1. LEVOTHYROX [Interacting]
     Active Substance: LEVOTHYROXINE
     Indication: GOITRE
     Dosage: 12.5 UG, 1X/DAY
     Route: 048
     Dates: end: 20180123
  2. BENEPALI [Concomitant]
     Active Substance: ETANERCEPT
  3. EFFEXOR LP [Suspect]
     Active Substance: VENLAFAXINE HYDROCHLORIDE
     Indication: DEPRESSION
     Dosage: 1 DF, 1X/DAY
     Route: 048
  4. DUROGESIC [Interacting]
     Active Substance: FENTANYL
     Indication: ARTHRALGIA
     Dosage: 1 DF, 3X/DAY
     Route: 062
  5. LUTENYL [Concomitant]
     Active Substance: NOMEGESTROL ACETATE

REACTIONS (3)
  - Drug interaction [Recovering/Resolving]
  - Tachycardia [Recovering/Resolving]
  - Serotonin syndrome [Recovering/Resolving]

NARRATIVE: CASE EVENT DATE: 201712
